FAERS Safety Report 6844896-2 (Version None)
Quarter: 2010Q3

REPORT INFORMATION
  Report Type: 
  Country: None (occurrence: None)
  Receive Date: 20100715
  Receipt Date: 20100707
  Transmission Date: 20110219
  Serious: Yes (Hospitalization)
  Sender: FDA-Public Use
  Company Number: US-WYE-H16009510

PATIENT
  Sex: Female

DRUGS (2)
  1. EFFEXOR XR [Suspect]
     Indication: HOMICIDAL IDEATION
     Route: 048
  2. PREMARIN [Suspect]
     Route: 048

REACTIONS (2)
  - COLITIS [None]
  - ULCER HAEMORRHAGE [None]
